FAERS Safety Report 24045436 (Version 4)
Quarter: 2024Q3

REPORT INFORMATION
  Report Type: Report from Study
  Country: US (occurrence: US)
  Receive Date: 20240703
  Receipt Date: 20240814
  Transmission Date: 20241016
  Serious: Yes (Hospitalization)
  Sender: EISAI
  Company Number: US-Eisai-EC-2024-169276

PATIENT
  Age: 68 Year
  Sex: Male
  Weight: 72.25 kg

DRUGS (2)
  1. LENVATINIB [Suspect]
     Active Substance: LENVATINIB
     Indication: Neuroendocrine carcinoma of prostate
     Dosage: UNKNOWN FREQUENCY
     Dates: start: 20240321, end: 20240613
  2. PEMBROLIZUMAB [Suspect]
     Active Substance: PEMBROLIZUMAB
     Indication: Neuroendocrine carcinoma of prostate
     Dosage: UNKNOWN FREQUENCY
     Dates: start: 20240321, end: 20240613

REACTIONS (2)
  - Pneumaturia [Recovered/Resolved with Sequelae]
  - Enterovesical fistula [Recovered/Resolved with Sequelae]

NARRATIVE: CASE EVENT DATE: 20240623
